FAERS Safety Report 4754534-0 (Version None)
Quarter: 2005Q3

REPORT INFORMATION
  Report Type: 
  Country: None (occurrence: None)
  Receive Date: 20050829
  Receipt Date: 20050118
  Transmission Date: 20060218
  Serious: No
  Sender: FDA-Public Use
  Company Number: 0010289

PATIENT
  Age: 57 Year
  Sex: Male
  Weight: 77.3 kg

DRUGS (1)
  1. ZOVIRAX [Suspect]
     Indication: DRUG USE FOR UNKNOWN INDICATION
     Dosage: 5PCT UNKNOWN
     Route: 061

REACTIONS (2)
  - BURNING SENSATION [None]
  - ERYTHEMA [None]
